FAERS Safety Report 17022049 (Version 1)
Quarter: 2019Q4

REPORT INFORMATION
  Report Type: Spontaneous
  Country: US (occurrence: US)
  Receive Date: 20191112
  Receipt Date: 20191112
  Transmission Date: 20200122
  Serious: Yes (Life-Threatening, Hospitalization, Other)
  Sender: FDA-Public Use
  Company Number: US-BAUSCH-BL-2019-059933

PATIENT
  Age: 40 Year
  Sex: Male

DRUGS (2)
  1. LEVETIRACETAM. [Concomitant]
     Active Substance: LEVETIRACETAM
     Indication: SEIZURE
  2. DEXAMETHASONE. [Suspect]
     Active Substance: DEXAMETHASONE
     Indication: ASTROCYTOMA
     Route: 065

REACTIONS (10)
  - Herpes simplex [Recovering/Resolving]
  - Small intestinal obstruction [Recovering/Resolving]
  - Strongyloidiasis [Recovering/Resolving]
  - Meningitis viral [Recovering/Resolving]
  - Inappropriate antidiuretic hormone secretion [Recovering/Resolving]
  - Acute respiratory distress syndrome [Recovering/Resolving]
  - Pneumonia streptococcal [Recovering/Resolving]
  - Varicella zoster virus infection [Recovering/Resolving]
  - Seizure [Recovering/Resolving]
  - Cytomegalovirus infection [Recovering/Resolving]
